FAERS Safety Report 20578002 (Version 1)
Quarter: 2022Q1

REPORT INFORMATION
  Report Type: Spontaneous
  Country: US (occurrence: US)
  Receive Date: 20220310
  Receipt Date: 20220310
  Transmission Date: 20220424
  Serious: No
  Sender: FDA-Public Use
  Company Number: US-BAUSCH-BL-2022-005974

PATIENT
  Sex: Female

DRUGS (1)
  1. TRULANCE [Suspect]
     Active Substance: PLECANATIDE
     Indication: Constipation
     Dosage: ON TRULANCE FOR THE LAST 6 MONTHS
     Route: 048
     Dates: start: 2021, end: 202202

REACTIONS (3)
  - Therapy interrupted [Unknown]
  - Maternal exposure during pregnancy [Unknown]
  - Product availability issue [Unknown]

NARRATIVE: CASE EVENT DATE: 20220201
